FAERS Safety Report 8085031-5 (Version None)
Quarter: 2012Q1

REPORT INFORMATION
  Report Type: 
  Country: None (occurrence: None)
  Receive Date: 20120128
  Receipt Date: 20110318
  Transmission Date: 20120608
  Serious: No
  Sender: FDA-Public Use
  Company Number: US-ABBOTT-11P-163-0713166-00

PATIENT
  Age: 56 Year
  Sex: Female

DRUGS (10)
  1. ZANAFLEX [Concomitant]
     Indication: MUSCLE RELAXANT THERAPY
  2. HUMIRA [Suspect]
     Indication: PSORIATIC ARTHROPATHY
     Dates: end: 20100301
  3. METHOTREXATE [Concomitant]
     Indication: PRODUCT USED FOR UNKNOWN INDICATION
  4. CELEBREX [Concomitant]
     Indication: PSORIATIC ARTHROPATHY
  5. SIMVASTATIN [Concomitant]
     Indication: BLOOD CHOLESTEROL INCREASED
  6. COUMADIN [Concomitant]
     Indication: THROMBOSIS PROPHYLAXIS
  7. VITAMIN B-12 [Concomitant]
     Indication: PRODUCT USED FOR UNKNOWN INDICATION
     Route: 050
  8. PRISTIQ [Concomitant]
     Indication: DEPRESSION
  9. ZYLOPRIM [Concomitant]
     Indication: GOUT
  10. LYRICA [Concomitant]
     Indication: FIBROMYALGIA

REACTIONS (2)
  - PSORIATIC ARTHROPATHY [None]
  - DRUG INEFFECTIVE [None]
